FAERS Safety Report 18180735 (Version 1)
Quarter: 2020Q3

REPORT INFORMATION
  Report Type: Spontaneous
  Country: US (occurrence: US)
  Receive Date: 20200821
  Receipt Date: 20200821
  Transmission Date: 20201103
  Serious: No
  Sender: FDA-Public Use
  Company Number: None

PATIENT
  Age: 44 Year
  Sex: Female
  Weight: 71.3 kg

DRUGS (1)
  1. RITUXAN [Suspect]
     Active Substance: RITUXIMAB
     Indication: LYMPHOMA
     Dosage: ?          OTHER FREQUENCY:WEEKLY X4 2X/YR;?
     Dates: start: 20190605

REACTIONS (5)
  - Pruritus [None]
  - Infusion related reaction [None]
  - Dyspnoea [None]
  - Chest discomfort [None]
  - Cough [None]

NARRATIVE: CASE EVENT DATE: 20200803
